FAERS Safety Report 6348777-2 (Version None)
Quarter: 2009Q3

REPORT INFORMATION
  Report Type: 
  Country: None (occurrence: None)
  Receive Date: 20090911
  Receipt Date: 20090901
  Transmission Date: 20100115
  Serious: Yes (Hospitalization)
  Sender: FDA-Public Use
  Company Number: US-AMGEN-QUU362756

PATIENT
  Sex: Female

DRUGS (3)
  1. ENBREL [Suspect]
     Indication: RHEUMATOID ARTHRITIS
     Dates: start: 20010101
  2. HUMIRA [Concomitant]
  3. UNSPECIFIED MEDICATION [Concomitant]

REACTIONS (7)
  - ARTHRITIS [None]
  - DRUG THERAPY CHANGED [None]
  - DYSPNOEA [None]
  - PARATHYROIDECTOMY [None]
  - THYROID OPERATION [None]
  - TRACHEOSTOMY [None]
  - VOCAL CORD PARALYSIS [None]
